FAERS Safety Report 5346678-X (Version None)
Quarter: 2007Q2

REPORT INFORMATION
  Report Type: 
  Country: None (occurrence: None)
  Receive Date: 20070604
  Receipt Date: 20070516
  Transmission Date: 20071010
  Serious: Yes (Other)
  Sender: FDA-Public Use
  Company Number: 2007JP001818

PATIENT
  Age: 8 Year
  Sex: Male

DRUGS (5)
  1. PROGRAF [Suspect]
  2. CYCLOPHOSPHAMIDE [Concomitant]
  3. METHYLPREDNISOLONE 16MG TAB [Concomitant]
  4. PREDNISOLONE [Concomitant]
  5. CYCLOSPORINE [Concomitant]

REACTIONS (8)
  - CONVULSION [None]
  - DISEASE RECURRENCE [None]
  - EYE MOVEMENT DISORDER [None]
  - HEADACHE [None]
  - HISTIOCYTOSIS HAEMATOPHAGIC [None]
  - PNEUMONIA [None]
  - REVERSIBLE POSTERIOR LEUKOENCEPHALOPATHY SYNDROME [None]
  - VISUAL FIELD DEFECT [None]
